FAERS Safety Report 5133955-0 (Version None)
Quarter: 2006Q4

REPORT INFORMATION
  Report Type: 
  Country: None (occurrence: None)
  Receive Date: 20061019
  Receipt Date: 20061009
  Transmission Date: 20070319
  Serious: Yes (Hospitalization)
  Sender: FDA-Public Use
  Company Number: 2006124987

PATIENT
  Age: 71 Year
  Sex: Female

DRUGS (12)
  1. DALTEPARIN SODIUM [Suspect]
     Indication: THROMBOSIS PROPHYLAXIS
     Dosage: (2500 I.U., SUBCUTANEOUS
     Route: 058
     Dates: start: 20060915, end: 20060918
  2. BACLOFEN [Concomitant]
  3. CITALOPRAM HYDROBROMIDE [Concomitant]
  4. CLOPIDOGREL [Concomitant]
  5. DIGOXIN [Concomitant]
  6. DILTIAZEM [Concomitant]
  7. GABAPENTIN [Concomitant]
  8. OXYBUTYNIN CHLORIDE [Concomitant]
  9. PROPRANOLOL [Concomitant]
  10. SIMVASTATIN [Concomitant]
  11. VALPROATE SODIUM [Concomitant]
  12. TRIMETHOPRIM [Concomitant]

REACTIONS (2)
  - ANGIONEUROTIC OEDEMA [None]
  - CULTURE URINE POSITIVE [None]
